FAERS Safety Report 9518218 (Version 1)
Quarter: 2013Q3

REPORT INFORMATION
  Report Type: Spontaneous
  Country: FR (occurrence: FR)
  Receive Date: 20130912
  Receipt Date: 20130912
  Transmission Date: 20140515
  Serious: Yes (Other)
  Sender: FDA-Public Use
  Company Number: FR-JNJFOC-20130902911

PATIENT
  Sex: 0

DRUGS (6)
  1. GALANTAMINE HBR [Suspect]
     Indication: DEMENTIA ALZHEIMER^S TYPE
     Route: 065
  2. GALANTAMINE HBR [Suspect]
     Indication: DEMENTIA
     Route: 065
  3. BISOPROLOL [Interacting]
     Indication: DEMENTIA ALZHEIMER^S TYPE
     Route: 065
  4. BISOPROLOL [Interacting]
     Indication: DEMENTIA
     Route: 065
  5. VENLAFAXINE [Interacting]
     Indication: DEMENTIA ALZHEIMER^S TYPE
     Route: 065
  6. VENLAFAXINE [Interacting]
     Indication: DEMENTIA
     Route: 065

REACTIONS (2)
  - Hypotension [Unknown]
  - Drug interaction [Unknown]
